FAERS Safety Report 5908299-7 (Version None)
Quarter: 2008Q4

REPORT INFORMATION
  Report Type: 
  Country: None (occurrence: None)
  Receive Date: 20081002
  Receipt Date: 20081002
  Transmission Date: 20090506
  Serious: Yes (Other)
  Sender: FDA-Public Use
  Company Number: None

PATIENT
  Sex: Male
  Weight: 117.9352 kg

DRUGS (30)
  1. MESTINON [Suspect]
     Indication: ASTHENIA
     Dosage: 2 - 60MG T.I.D. ORAL
     Route: 048
     Dates: start: 20080201, end: 20080901
  2. LANTOS [Concomitant]
  3. NOVLIN R [Concomitant]
  4. PEPCID [Concomitant]
  5. CYMBALTA [Concomitant]
  6. PREDNISONE [Concomitant]
  7. HYDROCHLOROT [Concomitant]
  8. PROTONIX [Concomitant]
  9. TOPROL-XL [Concomitant]
  10. NASONEX [Concomitant]
  11. ZESTRIL [Concomitant]
  12. CELEXA [Concomitant]
  13. METFORMIN HCL [Concomitant]
  14. CELLCEPT [Concomitant]
  15. ZYRTEC [Concomitant]
  16. SEROQUEL [Concomitant]
  17. MULTI-VITAMIN [Concomitant]
  18. XANAX [Concomitant]
  19. MOTRIN [Concomitant]
  20. LYRICA [Concomitant]
  21. MUCINEX [Concomitant]
  22. CEFTIN [Concomitant]
  23. REMERON [Concomitant]
  24. IMITREX [Concomitant]
  25. CLINDAMYCIN PHOSPHATE [Concomitant]
  26. ZOPENEX [Concomitant]
  27. AMBIEN [Concomitant]
  28. LORTAB [Concomitant]
  29. FLEXERIL [Concomitant]
  30. OPTIVE [Concomitant]

REACTIONS (7)
  - CONDITION AGGRAVATED [None]
  - DRUG INEFFECTIVE [None]
  - DYSPNOEA [None]
  - FATIGUE [None]
  - MYASTHENIA GRAVIS [None]
  - PRODUCT COUNTERFEIT [None]
  - PRODUCT QUALITY ISSUE [None]
